APPROVED DRUG PRODUCT: VALRUBICIN
Active Ingredient: VALRUBICIN
Strength: 40MG/ML
Dosage Form/Route: SOLUTION;INTRAVESICAL
Application: A206430 | Product #001 | TE Code: AO
Applicant: HIKMA PHARMACEUTICALS USA INC
Approved: Apr 19, 2019 | RLD: No | RS: No | Type: RX